FAERS Safety Report 9640541 (Version 1)
Quarter: 2013Q4

REPORT INFORMATION
  Report Type: Report from Study
  Country: US (occurrence: US)
  Receive Date: 20131023
  Receipt Date: 20131023
  Transmission Date: 20140711
  Serious: No
  Sender: FDA-Public Use
  Company Number: US-ABBVIE-13P-163-1086164-00

PATIENT
  Age: 40 Year
  Sex: Female
  Weight: 103.06 kg

DRUGS (2)
  1. LUPRON DEPOT [Suspect]
     Indication: ENDOMETRIOSIS
     Dates: start: 20130318
  2. SEROQUEL [Concomitant]
     Indication: BIPOLAR DISORDER

REACTIONS (5)
  - Mood altered [Not Recovered/Not Resolved]
  - Hot flush [Not Recovered/Not Resolved]
  - Poor quality sleep [Not Recovered/Not Resolved]
  - Fatigue [Not Recovered/Not Resolved]
  - Headache [Not Recovered/Not Resolved]
